FAERS Safety Report 10006061 (Version 4)
Quarter: 2014Q1

REPORT INFORMATION
  Report Type: Spontaneous
  Country: US (occurrence: US)
  Receive Date: 20140313
  Receipt Date: 20140325
  Transmission Date: 20141002
  Serious: Yes (Death, Hospitalization)
  Sender: FDA-Public Use
  Company Number: US-JNJFOC-20140306418

PATIENT
  Age: 75 Year
  Sex: Male
  Weight: 77.84 kg

DRUGS (6)
  1. XARELTO [Suspect]
     Indication: DEEP VEIN THROMBOSIS
     Route: 048
     Dates: start: 201306
  2. ASA [Suspect]
     Indication: PRODUCT USED FOR UNKNOWN INDICATION
     Route: 048
  3. OMEPRAZOLE [Concomitant]
     Route: 048
  4. LEVOTHYROXINE [Concomitant]
     Route: 048
  5. SIMVASTATIN [Concomitant]
     Route: 048
  6. FISH OIL [Concomitant]
     Dosage: 1 CAP DAILY
     Route: 048

REACTIONS (2)
  - Cerebral haemorrhage [Fatal]
  - Haemoglobin decreased [Unknown]
